FAERS Safety Report 16136991 (Version 1)
Quarter: 2019Q2

REPORT INFORMATION
  Report Type: Other
  Country: GB (occurrence: GB)
  Receive Date: 20190401
  Receipt Date: 20190401
  Transmission Date: 20190711
  Serious: Yes (Hospitalization, Disabling, Other)
  Sender: FDA-Public Use
  Company Number: GB-LUPIN PHARMACEUTICALS INC.-2018-02850

PATIENT
  Age: 36 Year
  Sex: Male
  Weight: 110 kg

DRUGS (1)
  1. SERTRALINE [Suspect]
     Active Substance: SERTRALINE HYDROCHLORIDE
     Indication: DEPRESSION SUICIDAL
     Dosage: 100 MG, UNK
     Route: 048
     Dates: start: 20160901

REACTIONS (1)
  - Suicidal ideation [Not Recovered/Not Resolved]
